FAERS Safety Report 21871402 (Version 1)
Quarter: 2023Q1

REPORT INFORMATION
  Report Type: Spontaneous
  Country: US (occurrence: None)
  Receive Date: 20230113
  Receipt Date: 20230113
  Transmission Date: 20230417
  Serious: Yes (Death)
  Sender: FDA-Public Use
  Company Number: None

PATIENT
  Sex: Male

DRUGS (2)
  1. LENALIDOMIDE [Suspect]
     Active Substance: LENALIDOMIDE
     Indication: Plasma cell myeloma
     Dosage: TAKE 1 CAPSULE BY MOUTH DAILY ON DAYS 1-21 OF EACH 28 DAY CYCLE. TAKE WHOLE WITH WATER AT THE SAME T
     Route: 048
     Dates: start: 20221129
  2. NINLARO [Concomitant]
     Active Substance: IXAZOMIB CITRATE

REACTIONS (1)
  - Death [None]
